FAERS Safety Report 11972820 (Version 1)
Quarter: 2016Q1

REPORT INFORMATION
  Report Type: Spontaneous
  Country: IE (occurrence: IE)
  Receive Date: 20160128
  Receipt Date: 20160128
  Transmission Date: 20160526
  Serious: Yes (Other)
  Sender: FDA-Public Use
  Company Number: PHFR2016IE001016

PATIENT
  Sex: Male

DRUGS (2)
  1. IMATINIB [Suspect]
     Active Substance: IMATINIB
     Indication: HYPEREOSINOPHILIC SYNDROME
  2. IMATINIB [Suspect]
     Active Substance: IMATINIB
     Indication: CHRONIC EOSINOPHILIC LEUKAEMIA
     Dosage: LOW DOSE IMATINIB
     Route: 065

REACTIONS (2)
  - Second primary malignancy [Unknown]
  - Prostate cancer [Unknown]
